FAERS Safety Report 23870842 (Version 2)
Quarter: 2024Q2

REPORT INFORMATION
  Report Type: Spontaneous
  Country: DE (occurrence: DE)
  Receive Date: 20240518
  Receipt Date: 20240523
  Transmission Date: 20240716
  Serious: Yes (Other)
  Sender: FDA-Public Use
  Company Number: DE-TEVA-VS-3198403

PATIENT
  Age: 25 Year
  Sex: Female

DRUGS (1)
  1. TERIFLUNOMIDE [Suspect]
     Active Substance: TERIFLUNOMIDE
     Indication: Multiple sclerosis
     Dosage: TERIFLUNOMID-RATIOPHARM 14 MG FILMTABLETTEN
     Route: 048
     Dates: start: 2024

REACTIONS (8)
  - Carpal tunnel syndrome [Unknown]
  - Pain in extremity [Unknown]
  - Paraesthesia [Unknown]
  - Pain [Unknown]
  - Hypoaesthesia [Unknown]
  - Temperature intolerance [Recovered/Resolved]
  - Nerve injury [Unknown]
  - Burning sensation [Unknown]

NARRATIVE: CASE EVENT DATE: 20240101
